FAERS Safety Report 9839556 (Version 1)
Quarter: 2014Q1

REPORT INFORMATION
  Report Type: Spontaneous
  Country: US (occurrence: US)
  Receive Date: 20140124
  Receipt Date: 20140124
  Transmission Date: 20141002
  Serious: No
  Sender: FDA-Public Use
  Company Number: US-009507513-1401USA000148

PATIENT
  Age: 62 Year
  Sex: Male

DRUGS (8)
  1. FINASTERIDE [Suspect]
     Dosage: UNK
     Route: 048
     Dates: start: 20130610
  2. PROPECIA [Suspect]
     Indication: ALOPECIA
     Dosage: UNK
     Route: 048
  3. PROPECIA [Suspect]
     Dosage: 1 DF, ONCE DAILY
     Route: 048
     Dates: start: 20131227
  4. FINASTERIDE [Suspect]
     Dosage: 5 MG TABLETS SPLIT INTO 5 PIECES AND TOOK ONE PIECE PER DAY
     Route: 048
  5. VALSARTAN [Concomitant]
  6. METOPROLOL [Concomitant]
  7. PRAVASTATIN SODIUM [Concomitant]
  8. AMLODIPINE [Concomitant]

REACTIONS (4)
  - Alopecia [Not Recovered/Not Resolved]
  - Wrong technique in drug usage process [Unknown]
  - Alopecia [Not Recovered/Not Resolved]
  - Product quality issue [Unknown]
